FAERS Safety Report 11125944 (Version 3)
Quarter: 2015Q3

REPORT INFORMATION
  Report Type: Spontaneous
  Country: US (occurrence: US)
  Receive Date: 20150520
  Receipt Date: 20150702
  Transmission Date: 20151125
  Serious: Yes (Other)
  Sender: FDA-Public Use
  Company Number: US-GILEAD-2015-0153950

PATIENT
  Age: 66 Year
  Sex: Male

DRUGS (2)
  1. HARVONI [Suspect]
     Active Substance: LEDIPASVIR\SOFOSBUVIR
     Indication: HEPATITIS C
     Dosage: 1 DF, QD
     Route: 048
  2. RIBAVIRIN. [Concomitant]
     Active Substance: RIBAVIRIN

REACTIONS (11)
  - Haemoglobin decreased [Unknown]
  - Tremor [Unknown]
  - Influenza like illness [Unknown]
  - Malaise [Unknown]
  - Language disorder [Unknown]
  - White blood cell count increased [Unknown]
  - Insomnia [Unknown]
  - Fatigue [Unknown]
  - Memory impairment [Unknown]
  - Dizziness [Unknown]
  - Depression [Unknown]
